FAERS Safety Report 13869981 (Version 1)
Quarter: 2017Q3

REPORT INFORMATION
  Report Type: Spontaneous
  Country: AU (occurrence: AU)
  Receive Date: 20170815
  Receipt Date: 20170815
  Transmission Date: 20171127
  Serious: Yes (Other)
  Sender: FDA-Public Use
  Company Number: AU-TEVA-794895ISR

PATIENT
  Age: 66 Year
  Sex: Female

DRUGS (7)
  1. PAXAM [Concomitant]
     Active Substance: CLONAZEPAM
  2. NUVIGIL [Suspect]
     Active Substance: ARMODAFINIL
     Indication: ATTENTION DEFICIT/HYPERACTIVITY DISORDER
     Dosage: 150 MILLIGRAM DAILY;
     Route: 048
     Dates: start: 20170728
  3. XARELTO [Concomitant]
     Active Substance: RIVAROXABAN
  4. NUVIGIL [Suspect]
     Active Substance: ARMODAFINIL
     Indication: FATIGUE
  5. NUVIGIL [Suspect]
     Active Substance: ARMODAFINIL
     Indication: DEPRESSION
  6. EDRONAX [Concomitant]
     Active Substance: REBOXETINE MESYLATE
  7. NOXOCID [Concomitant]

REACTIONS (4)
  - Vision blurred [Unknown]
  - Off label use [Unknown]
  - Lower respiratory tract infection [Unknown]
  - Dizziness [Unknown]

NARRATIVE: CASE EVENT DATE: 20170802
